FAERS Safety Report 7120605-7 (Version None)
Quarter: 2010Q4

REPORT INFORMATION
  Report Type: 
  Country: None (occurrence: None)
  Receive Date: 20101124
  Receipt Date: 20101117
  Transmission Date: 20110411
  Serious: Yes (Other)
  Sender: FDA-Public Use
  Company Number: US-US-EMD SERONO, INC.-7028308

PATIENT
  Sex: Female

DRUGS (6)
  1. REBIF [Suspect]
     Indication: PRODUCT USED FOR UNKNOWN INDICATION
     Route: 058
     Dates: start: 20100207
  2. SOMA [Concomitant]
     Dates: end: 20100101
  3. LYRICA [Concomitant]
  4. LEXAPRO [Concomitant]
  5. KAPPLIN [Concomitant]
  6. CLONOPIN [Concomitant]

REACTIONS (7)
  - CONTUSION [None]
  - DRUG INEFFECTIVE [None]
  - DRUG TOLERANCE INCREASED [None]
  - FEELING ABNORMAL [None]
  - GAIT DISTURBANCE [None]
  - PAIN IN EXTREMITY [None]
  - SUICIDE ATTEMPT [None]
